FAERS Safety Report 7042288-7 (Version None)
Quarter: 2010Q4

REPORT INFORMATION
  Report Type: 
  Country: None (occurrence: None)
  Receive Date: 20101013
  Receipt Date: 20091007
  Transmission Date: 20110411
  Serious: No
  Sender: FDA-Public Use
  Company Number: US-ASTRAZENECA-2009SE09541

PATIENT
  Age: 42 Year
  Sex: Male

DRUGS (2)
  1. SYMBICORT [Suspect]
     Indication: EX-TOBACCO USER
     Dosage: 740 MICROGRAM
     Route: 055
     Dates: start: 20090723
  2. VENTOLIN [Concomitant]

REACTIONS (1)
  - SLUGGISHNESS [None]
